FAERS Safety Report 18652227 (Version 2)
Quarter: 2021Q1

REPORT INFORMATION
  Report Type: Spontaneous
  Country: US (occurrence: US)
  Receive Date: 20201223
  Receipt Date: 20210113
  Transmission Date: 20210419
  Serious: No
  Sender: FDA-Public Use
  Company Number: US-GW PHARMA-202012USGW04464

PATIENT

DRUGS (2)
  1. EPIDIOLEX [Suspect]
     Active Substance: CANNABIDIOL
     Indication: LENNOX-GASTAUT SYNDROME
     Dosage: 250 MILLIGRAM, BID
     Route: 048
     Dates: start: 202006, end: 2020
  2. EPIDIOLEX [Suspect]
     Active Substance: CANNABIDIOL
     Dosage: 600 MILLIGRAM, QD (250 MG IN AM AND 350 MG IN PM)
     Route: 048
     Dates: start: 2020

REACTIONS (3)
  - Seizure [Unknown]
  - Drug ineffective [Unknown]
  - Prescribed overdose [Unknown]

NARRATIVE: CASE EVENT DATE: 2020
